FAERS Safety Report 8078206-2 (Version None)
Quarter: 2012Q1

REPORT INFORMATION
  Report Type: 
  Country: None (occurrence: None)
  Receive Date: 20120127
  Receipt Date: 20110131
  Transmission Date: 20120608
  Serious: No
  Sender: FDA-Public Use
  Company Number: US-ABBOTT-10P-163-0691652-00

PATIENT
  Sex: Female
  Weight: 49.94 kg

DRUGS (6)
  1. HUMIRA [Suspect]
     Route: 058
     Dates: start: 20090101, end: 20091101
  2. LIPITOR [Concomitant]
     Indication: BLOOD CHOLESTEROL INCREASED
  3. HUMIRA [Suspect]
     Indication: RHEUMATOID ARTHRITIS
     Route: 058
     Dates: start: 20070101, end: 20091001
  4. DIOVAN [Concomitant]
     Indication: HYPERTENSION
  5. TOPROL-XL [Concomitant]
     Indication: HYPERTENSION
  6. HUMIRA [Suspect]
     Dosage: JUST ONE DOSE TAKEN WHEN RE-STARTED IN DEC 2010.
     Route: 058
     Dates: start: 20101213, end: 20101213

REACTIONS (8)
  - BLOOD CHOLESTEROL INCREASED [None]
  - ERYTHEMA OF EYELID [None]
  - STAPHYLOCOCCAL INFECTION [None]
  - POOR QUALITY SLEEP [None]
  - EYELID OEDEMA [None]
  - RHEUMATOID ARTHRITIS [None]
  - EYE INFECTION [None]
  - EYE INFECTION STAPHYLOCOCCAL [None]
